FAERS Safety Report 14297173 (Version 3)
Quarter: 2018Q1

REPORT INFORMATION
  Report Type: Spontaneous
  Country: JP (occurrence: JP)
  Receive Date: 20171218
  Receipt Date: 20180125
  Transmission Date: 20180509
  Serious: Yes (Death, Other)
  Sender: FDA-Public Use
  Company Number: JP-009507513-1712JPN001838J

PATIENT
  Age: 61 Year
  Sex: Male

DRUGS (2)
  1. KEYTRUDA [Suspect]
     Active Substance: PEMBROLIZUMAB
     Indication: SQUAMOUS CELL CARCINOMA OF LUNG
     Dosage: 200 MG, ONCE
     Route: 041
     Dates: start: 20171205, end: 20171205
  2. ABRAXANE [Suspect]
     Active Substance: PACLITAXEL
     Dosage: UNK, ONCE
     Route: 051
     Dates: start: 201712

REACTIONS (2)
  - Drug ineffective [Unknown]
  - Malignant neoplasm progression [Fatal]

NARRATIVE: CASE EVENT DATE: 20171212
